FAERS Safety Report 5408047-3 (Version None)
Quarter: 2007Q3

REPORT INFORMATION
  Report Type: 
  Country: None (occurrence: None)
  Receive Date: 20070808
  Receipt Date: 20070802
  Transmission Date: 20080115
  Serious: Yes (Other)
  Sender: FDA-Public Use
  Company Number: PHEH2007US10534

PATIENT
  Sex: Female

DRUGS (1)
  1. COMBIPATCH [Suspect]
     Dosage: 0.05/.04 MG/DAY, UNK
     Route: 062
     Dates: start: 20060209, end: 20060806

REACTIONS (6)
  - BREAST TENDERNESS [None]
  - BREATH ODOUR [None]
  - CEREBROVASCULAR ACCIDENT [None]
  - HEADACHE [None]
  - SKIN DISORDER [None]
  - SKIN ODOUR ABNORMAL [None]
